FAERS Safety Report 26159184 (Version 1)
Quarter: 2025Q4

REPORT INFORMATION
  Report Type: Report from Study
  Country: CN (occurrence: CN)
  Receive Date: 20251216
  Receipt Date: 20251216
  Transmission Date: 20260117
  Serious: Yes (Life-Threatening, Other)
  Sender: ROCHE
  Company Number: CN-ROCHE-10000267378

PATIENT
  Age: 60 Year
  Sex: Female
  Weight: 62 kg

DRUGS (235)
  1. RITUXIMAB [Suspect]
     Active Substance: RITUXIMAB
     Indication: Diffuse large B-cell lymphoma
     Dosage: HE RECEIVED HIS SUBSEQUENT DOSES ON 13-SEP-2023, 16-OCT-2023, 11-NOV-2023, 24-DEC-2023, 5-DEC-2023
     Route: 041
  2. POLATUZUMAB VEDOTIN [Suspect]
     Active Substance: POLATUZUMAB VEDOTIN
     Indication: Diffuse large B-cell lymphoma
     Route: 041
  3. POLATUZUMAB VEDOTIN [Suspect]
     Active Substance: POLATUZUMAB VEDOTIN
     Route: 041
     Dates: end: 20230914
  4. POLATUZUMAB VEDOTIN [Suspect]
     Active Substance: POLATUZUMAB VEDOTIN
     Route: 041
     Dates: end: 20231112
  5. POLATUZUMAB VEDOTIN [Suspect]
     Active Substance: POLATUZUMAB VEDOTIN
     Route: 041
     Dates: end: 20231227
  6. POLATUZUMAB VEDOTIN [Suspect]
     Active Substance: POLATUZUMAB VEDOTIN
     Route: 041
     Dates: end: 20231206
  7. POLATUZUMAB VEDOTIN [Suspect]
     Active Substance: POLATUZUMAB VEDOTIN
     Route: 041
     Dates: end: 20231017
  8. PREDNISONE [Suspect]
     Active Substance: PREDNISONE
     Indication: Diffuse large B-cell lymphoma
     Route: 048
  9. PREDNISONE [Suspect]
     Active Substance: PREDNISONE
     Route: 048
     Dates: end: 20230918
  10. PREDNISONE [Suspect]
     Active Substance: PREDNISONE
     Route: 048
     Dates: end: 20231116
  11. PREDNISONE [Suspect]
     Active Substance: PREDNISONE
     Route: 048
     Dates: end: 20240101
  12. PREDNISONE [Suspect]
     Active Substance: PREDNISONE
     Route: 048
     Dates: end: 20231210
  13. PREDNISONE [Suspect]
     Active Substance: PREDNISONE
     Route: 048
     Dates: end: 20231020
  14. DECITABINE [Suspect]
     Active Substance: DECITABINE
     Indication: Diffuse large B-cell lymphoma
     Route: 041
     Dates: end: 20230917
  15. DECITABINE [Suspect]
     Active Substance: DECITABINE
     Route: 041
     Dates: end: 20230918
  16. DECITABINE [Suspect]
     Active Substance: DECITABINE
     Route: 041
     Dates: end: 20230918
  17. DECITABINE [Suspect]
     Active Substance: DECITABINE
     Route: 041
     Dates: end: 20231015
  18. DECITABINE [Suspect]
     Active Substance: DECITABINE
     Route: 041
     Dates: end: 20231108
  19. DECITABINE [Suspect]
     Active Substance: DECITABINE
     Route: 041
     Dates: end: 20231110
  20. DECITABINE [Suspect]
     Active Substance: DECITABINE
     Route: 041
     Dates: end: 20231111
  21. DECITABINE [Suspect]
     Active Substance: DECITABINE
     Route: 041
     Dates: end: 20231111
  22. DECITABINE [Suspect]
     Active Substance: DECITABINE
     Route: 041
     Dates: end: 20231204
  23. DECITABINE [Suspect]
     Active Substance: DECITABINE
     Route: 041
     Dates: end: 20231205
  24. DECITABINE [Suspect]
     Active Substance: DECITABINE
     Route: 041
     Dates: end: 20231226
  25. SULFAMETHOXAZOLE [Suspect]
     Active Substance: SULFAMETHOXAZOLE
     Indication: Diffuse large B-cell lymphoma
     Route: 048
     Dates: end: 20231108
  26. SULFAMETHOXAZOLE [Suspect]
     Active Substance: SULFAMETHOXAZOLE
     Route: 048
     Dates: end: 20231207
  27. VANCOMYCIN [Suspect]
     Active Substance: VANCOMYCIN
     Indication: Diffuse large B-cell lymphoma
     Dates: end: 20231009
  28. VANCOMYCIN [Suspect]
     Active Substance: VANCOMYCIN
     Dates: end: 20231023
  29. VANCOMYCIN [Suspect]
     Active Substance: VANCOMYCIN
     Dates: end: 20231207
  30. CEFACLOR [Suspect]
     Active Substance: CEFACLOR
     Indication: Diffuse large B-cell lymphoma
     Route: 048
     Dates: end: 20230920
  31. CEFACLOR [Suspect]
     Active Substance: CEFACLOR
     Route: 048
     Dates: end: 20231015
  32. CEFACLOR [Suspect]
     Active Substance: CEFACLOR
     Route: 048
  33. LINEZOLID [Suspect]
     Active Substance: LINEZOLID
     Indication: Diffuse large B-cell lymphoma
     Route: 048
     Dates: end: 20230904
  34. LINEZOLID [Suspect]
     Active Substance: LINEZOLID
     Route: 048
     Dates: end: 20230906
  35. CEFTAZIDIME [Suspect]
     Active Substance: CEFTAZIDIME
     Indication: Diffuse large B-cell lymphoma
     Route: 041
     Dates: end: 20230821
  36. CEFTAZIDIME [Suspect]
     Active Substance: CEFTAZIDIME
     Route: 041
     Dates: end: 20230822
  37. CEFTAZIDIME [Suspect]
     Active Substance: CEFTAZIDIME
     Route: 041
     Dates: end: 20231003
  38. CILASTATIN SODIUM\IMIPENEM [Suspect]
     Active Substance: CILASTATIN SODIUM\IMIPENEM
     Indication: Diffuse large B-cell lymphoma
     Route: 041
     Dates: end: 20230823
  39. CILASTATIN SODIUM\IMIPENEM [Suspect]
     Active Substance: CILASTATIN SODIUM\IMIPENEM
     Route: 041
     Dates: end: 20231003
  40. CILASTATIN SODIUM\IMIPENEM [Suspect]
     Active Substance: CILASTATIN SODIUM\IMIPENEM
     Route: 041
     Dates: end: 20231009
  41. MINOCYCLINE HYDROCHLORIDE [Suspect]
     Active Substance: MINOCYCLINE HYDROCHLORIDE
     Indication: Diffuse large B-cell lymphoma
     Route: 048
  42. MINOCYCLINE HYDROCHLORIDE [Suspect]
     Active Substance: MINOCYCLINE HYDROCHLORIDE
     Route: 048
  43. PIPERACILLIN AND TAZOBACTAM [Suspect]
     Active Substance: PIPERACILLIN SODIUM\TAZOBACTAM SODIUM
     Indication: Diffuse large B-cell lymphoma
     Dates: end: 20231207
  44. CEFOTAXIME [Suspect]
     Active Substance: CEFOTAXIME SODIUM
     Indication: Product used for unknown indication
  45. CYCLOPHOSPHAMIDE [Suspect]
     Active Substance: CYCLOPHOSPHAMIDE
     Indication: Diffuse large B-cell lymphoma
     Route: 041
     Dates: end: 20230824
  46. CYCLOPHOSPHAMIDE [Suspect]
     Active Substance: CYCLOPHOSPHAMIDE
     Route: 041
     Dates: end: 20230828
  47. CYCLOPHOSPHAMIDE [Suspect]
     Active Substance: CYCLOPHOSPHAMIDE
     Route: 041
     Dates: end: 20230914
  48. CYCLOPHOSPHAMIDE [Suspect]
     Active Substance: CYCLOPHOSPHAMIDE
     Route: 041
     Dates: end: 20231112
  49. CYCLOPHOSPHAMIDE [Suspect]
     Active Substance: CYCLOPHOSPHAMIDE
     Route: 041
     Dates: end: 20231206
  50. CYCLOPHOSPHAMIDE [Suspect]
     Active Substance: CYCLOPHOSPHAMIDE
     Route: 041
     Dates: end: 20231228
  51. CYCLOPHOSPHAMIDE [Suspect]
     Active Substance: CYCLOPHOSPHAMIDE
     Route: 041
     Dates: end: 20231016
  52. DOXORUBICIN HYDROCHLORIDE, LIPOSOMAL [Suspect]
     Active Substance: DOXORUBICIN HYDROCHLORIDE
     Indication: Diffuse large B-cell lymphoma
     Route: 041
     Dates: end: 20230828
  53. DOXORUBICIN HYDROCHLORIDE, LIPOSOMAL [Suspect]
     Active Substance: DOXORUBICIN HYDROCHLORIDE
     Route: 041
     Dates: end: 20230914
  54. DOXORUBICIN HYDROCHLORIDE, LIPOSOMAL [Suspect]
     Active Substance: DOXORUBICIN HYDROCHLORIDE
     Route: 041
     Dates: end: 20231112
  55. DOXORUBICIN HYDROCHLORIDE, LIPOSOMAL [Suspect]
     Active Substance: DOXORUBICIN HYDROCHLORIDE
     Route: 041
     Dates: end: 20230824
  56. DOXORUBICIN HYDROCHLORIDE, LIPOSOMAL [Suspect]
     Active Substance: DOXORUBICIN HYDROCHLORIDE
     Route: 041
     Dates: end: 20231206
  57. DOXORUBICIN HYDROCHLORIDE, LIPOSOMAL [Suspect]
     Active Substance: DOXORUBICIN HYDROCHLORIDE
     Route: 041
     Dates: end: 20231228
  58. DOXORUBICIN HYDROCHLORIDE, LIPOSOMAL [Suspect]
     Active Substance: DOXORUBICIN HYDROCHLORIDE
     Route: 041
     Dates: end: 20231016
  59. TORSEMIDE [Concomitant]
     Active Substance: TORSEMIDE
     Indication: Polyuria
     Route: 042
     Dates: start: 20231108, end: 20231207
  60. Omeprazole Enteric-coated Capsules [Concomitant]
     Indication: Product used for unknown indication
     Dosage: PROTECTING GASTRIC MUCOSA
     Route: 048
     Dates: start: 20230823, end: 20230830
  61. Omeprazole Enteric-coated Capsules [Concomitant]
     Route: 048
     Dates: start: 20230918, end: 20230919
  62. Omeprazole Enteric-coated Capsules [Concomitant]
     Route: 048
     Dates: start: 20231014, end: 20231017
  63. Omeprazole Enteric-coated Capsules [Concomitant]
     Route: 048
     Dates: start: 20231108, end: 20231112
  64. Omeprazole Enteric-coated Capsules [Concomitant]
     Dosage: PROTECTING GASTRIC MUCOSA
     Route: 048
     Dates: start: 20231119, end: 20231119
  65. Omeprazole Enteric-coated Capsules [Concomitant]
     Route: 048
     Dates: start: 20231127, end: 20231127
  66. Omeprazole Enteric-coated Capsules [Concomitant]
     Route: 048
     Dates: start: 20231205, end: 20231213
  67. Omeprazole Enteric-coated Capsules [Concomitant]
     Route: 048
     Dates: start: 20231207
  68. Entecavir Tablets [Concomitant]
     Route: 048
     Dates: start: 20230822, end: 20231121
  69. Entecavir Tablets [Concomitant]
     Route: 048
     Dates: start: 20230929, end: 20231122
  70. Entecavir Tablets [Concomitant]
     Route: 048
     Dates: start: 20231013, end: 20231110
  71. Entecavir Tablets [Concomitant]
     Route: 048
     Dates: start: 20231122, end: 20240103
  72. Entecavir Tablets [Concomitant]
     Route: 048
     Dates: start: 20231206, end: 20240103
  73. MEROPENEM [Concomitant]
     Active Substance: MEROPENEM
     Route: 041
     Dates: start: 20231010, end: 20231010
  74. MEROPENEM [Concomitant]
     Active Substance: MEROPENEM
     Dates: start: 20231010, end: 20231010
  75. MEROPENEM [Concomitant]
     Active Substance: MEROPENEM
     Route: 041
     Dates: start: 20231011, end: 20231013
  76. MEROPENEM [Concomitant]
     Active Substance: MEROPENEM
     Dates: start: 20231013, end: 20231014
  77. ALPRAZOLAM [Concomitant]
     Active Substance: ALPRAZOLAM
     Route: 048
     Dates: start: 20230829, end: 20230830
  78. ALPRAZOLAM [Concomitant]
     Active Substance: ALPRAZOLAM
     Route: 048
     Dates: start: 20230830, end: 20230914
  79. ALPRAZOLAM [Concomitant]
     Active Substance: ALPRAZOLAM
     Route: 048
     Dates: start: 20230928, end: 20231003
  80. ALPRAZOLAM [Concomitant]
     Active Substance: ALPRAZOLAM
     Route: 048
     Dates: start: 20231005, end: 20231010
  81. ALPRAZOLAM [Concomitant]
     Active Substance: ALPRAZOLAM
     Route: 048
     Dates: start: 20231012, end: 20231020
  82. ALPRAZOLAM [Concomitant]
     Active Substance: ALPRAZOLAM
     Dosage: 1 TTABLET
     Route: 048
     Dates: start: 20231021, end: 20231021
  83. ALPRAZOLAM [Concomitant]
     Active Substance: ALPRAZOLAM
     Route: 048
     Dates: start: 20231026, end: 20231108
  84. ALPRAZOLAM [Concomitant]
     Active Substance: ALPRAZOLAM
     Route: 048
     Dates: start: 20231111, end: 20231207
  85. ALPRAZOLAM [Concomitant]
     Active Substance: ALPRAZOLAM
     Route: 048
     Dates: start: 20231214, end: 20231220
  86. Carpofungin for injection [Concomitant]
  87. Carpofungin for injection [Concomitant]
     Dates: start: 20231108, end: 20231207
  88. ambroxol hydrochloride  injection [Concomitant]
     Indication: Productive cough
     Dates: start: 20231108, end: 20231204
  89. Human erythropoietin injection [Concomitant]
     Indication: Red blood cell count increased
     Route: 058
     Dates: start: 20231120, end: 20231207
  90. Palonosetron Hydrochloride Capsules [Concomitant]
     Route: 048
     Dates: start: 20230823, end: 20230823
  91. Palonosetron Hydrochloride Capsules [Concomitant]
     Route: 048
     Dates: start: 20231108, end: 20231108
  92. Palonosetron Hydrochloride Capsules [Concomitant]
     Route: 048
     Dates: start: 20231204, end: 20231204
  93. ACETYLCYSTEINE [Concomitant]
     Active Substance: ACETYLCYSTEINE
     Indication: Productive cough
     Route: 048
     Dates: start: 20230823, end: 20230823
  94. ACETYLCYSTEINE [Concomitant]
     Active Substance: ACETYLCYSTEINE
     Route: 048
     Dates: start: 20230831, end: 20230912
  95. ACETYLCYSTEINE [Concomitant]
     Active Substance: ACETYLCYSTEINE
     Route: 048
     Dates: start: 20230906, end: 20230906
  96. ACETYLCYSTEINE [Concomitant]
     Active Substance: ACETYLCYSTEINE
     Route: 048
     Dates: start: 20230918, end: 20230923
  97. ACETYLCYSTEINE [Concomitant]
     Active Substance: ACETYLCYSTEINE
     Route: 048
     Dates: start: 20230930, end: 20231015
  98. ACETYLCYSTEINE [Concomitant]
     Active Substance: ACETYLCYSTEINE
     Dosage: 20 PIECES
     Route: 048
     Dates: start: 20231013, end: 20231013
  99. ACETYLCYSTEINE [Concomitant]
     Active Substance: ACETYLCYSTEINE
     Route: 048
     Dates: start: 20231108, end: 20231108
  100. ACETYLCYSTEINE [Concomitant]
     Active Substance: ACETYLCYSTEINE
     Dosage: 1 TABLET
     Route: 048
     Dates: start: 20231204, end: 20231204
  101. FLUCONAZOLE [Concomitant]
     Active Substance: FLUCONAZOLE
     Route: 041
     Dates: start: 20231006, end: 20231008
  102. FLUCONAZOLE [Concomitant]
     Active Substance: FLUCONAZOLE
     Route: 041
     Dates: start: 20231014, end: 20231023
  103. METRONIDAZOLE\SODIUM CHLORIDE [Concomitant]
     Active Substance: METRONIDAZOLE\SODIUM CHLORIDE
     Indication: Hypoglycaemia
     Route: 041
     Dates: start: 20231007, end: 20231009
  104. METRONIDAZOLE\SODIUM CHLORIDE [Concomitant]
     Active Substance: METRONIDAZOLE\SODIUM CHLORIDE
     Route: 041
     Dates: start: 20231013, end: 20231023
  105. compound paracetamol tablet [Concomitant]
     Route: 048
     Dates: start: 20230824, end: 20230824
  106. compound paracetamol tablet [Concomitant]
     Route: 048
     Dates: start: 20231013, end: 20231013
  107. compound paracetamol tablet [Concomitant]
     Route: 048
     Dates: start: 20231109, end: 20231113
  108. ALBUMIN HUMAN [Concomitant]
     Active Substance: ALBUMIN HUMAN
     Indication: Blood albumin increased
     Route: 041
     Dates: start: 20230830, end: 20230920
  109. ALBUMIN HUMAN [Concomitant]
     Active Substance: ALBUMIN HUMAN
     Route: 041
     Dates: start: 20231002, end: 20231009
  110. ALBUMIN HUMAN [Concomitant]
     Active Substance: ALBUMIN HUMAN
     Route: 041
     Dates: start: 20231011, end: 20231011
  111. ALBUMIN HUMAN [Concomitant]
     Active Substance: ALBUMIN HUMAN
     Route: 041
     Dates: start: 20231016, end: 20231016
  112. ALBUMIN HUMAN [Concomitant]
     Active Substance: ALBUMIN HUMAN
     Route: 041
     Dates: start: 20231017, end: 20231023
  113. ALBUMIN HUMAN [Concomitant]
     Active Substance: ALBUMIN HUMAN
     Route: 041
     Dates: start: 20231108, end: 20231117
  114. ALBUMIN HUMAN [Concomitant]
     Active Substance: ALBUMIN HUMAN
     Route: 041
     Dates: start: 20231206, end: 20231207
  115. ALBUMIN HUMAN [Concomitant]
     Active Substance: ALBUMIN HUMAN
     Route: 041
     Dates: start: 20231205, end: 20231205
  116. Potassium chloride  sustained-release tablets [Concomitant]
     Route: 048
     Dates: start: 20230914, end: 20230914
  117. Potassium chloride  sustained-release tablets [Concomitant]
     Route: 048
     Dates: start: 20230915, end: 20231001
  118. Potassium chloride  sustained-release tablets [Concomitant]
     Dosage: OTHER ROUTE OF MEDICATION ADMIN * DILUTED ORALLY
     Dates: start: 20231002, end: 20231002
  119. Potassium chloride  sustained-release tablets [Concomitant]
     Route: 048
     Dates: start: 20231003, end: 20231003
  120. Potassium chloride  sustained-release tablets [Concomitant]
     Route: 048
     Dates: start: 20231003, end: 20231010
  121. Potassium chloride  sustained-release tablets [Concomitant]
     Route: 041
     Dates: start: 20231010, end: 20231013
  122. Potassium chloride  sustained-release tablets [Concomitant]
     Route: 048
     Dates: start: 20231110, end: 20231110
  123. Potassium chloride  sustained-release tablets [Concomitant]
     Route: 048
     Dates: start: 20231111, end: 20231207
  124. Potassium chloride  sustained-release tablets [Concomitant]
     Route: 048
     Dates: start: 20231125, end: 20231128
  125. Potassium chloride  sustained-release tablets [Concomitant]
     Route: 041
     Dates: start: 20231010, end: 20231013
  126. Valaciclovir hydrochloride tablets [Concomitant]
     Route: 048
     Dates: start: 20230914, end: 20230914
  127. Valaciclovir hydrochloride tablets [Concomitant]
     Route: 048
     Dates: start: 20230915, end: 20230923
  128. Valaciclovir hydrochloride tablets [Concomitant]
     Route: 048
     Dates: start: 20230918, end: 20230923
  129. Valaciclovir hydrochloride tablets [Concomitant]
     Route: 048
     Dates: start: 20231017, end: 20231017
  130. Valaciclovir hydrochloride tablets [Concomitant]
     Route: 048
     Dates: start: 20231020, end: 20231020
  131. Valaciclovir hydrochloride tablets [Concomitant]
     Route: 048
     Dates: start: 20231026, end: 20231112
  132. Valaciclovir hydrochloride tablets [Concomitant]
     Route: 048
     Dates: start: 20231116, end: 20231207
  133. Intravenous injection of human immunoglobulin [Concomitant]
     Route: 041
     Dates: start: 20231003, end: 20231009
  134. Intravenous injection of human immunoglobulin [Concomitant]
     Route: 041
     Dates: start: 20231111, end: 20231112
  135. Intravenous injection of human immunoglobulin [Concomitant]
     Route: 041
     Dates: start: 20231117, end: 20231117
  136. Intravenous injection of human immunoglobulin [Concomitant]
     Route: 041
     Dates: start: 20231118, end: 20231125
  137. Ondansetron Hydrochloride Injection [Concomitant]
     Route: 042
     Dates: start: 20230913, end: 20230918
  138. Ondansetron Hydrochloride Injection [Concomitant]
     Dates: start: 20231121, end: 20231121
  139. Ondansetron Hydrochloride Injection [Concomitant]
     Dates: start: 20231122, end: 20231207
  140. PROMETHAZINE [Concomitant]
     Active Substance: PROMETHAZINE HYDROCHLORIDE
     Route: 030
     Dates: start: 20221205, end: 20231207
  141. PROMETHAZINE [Concomitant]
     Active Substance: PROMETHAZINE HYDROCHLORIDE
     Route: 030
     Dates: start: 20230824, end: 20230824
  142. PROMETHAZINE [Concomitant]
     Active Substance: PROMETHAZINE HYDROCHLORIDE
     Route: 030
     Dates: start: 20230918, end: 20230918
  143. PROMETHAZINE [Concomitant]
     Active Substance: PROMETHAZINE HYDROCHLORIDE
     Route: 030
     Dates: start: 20231012, end: 20231012
  144. PROMETHAZINE [Concomitant]
     Active Substance: PROMETHAZINE HYDROCHLORIDE
     Route: 030
     Dates: start: 20231014, end: 20231014
  145. DEXAMETHASONE SODIUM PHOSPHATE [Concomitant]
     Active Substance: DEXAMETHASONE SODIUM PHOSPHATE
     Route: 042
     Dates: start: 20231014, end: 20231014
  146. DEXAMETHASONE SODIUM PHOSPHATE [Concomitant]
     Active Substance: DEXAMETHASONE SODIUM PHOSPHATE
     Route: 042
     Dates: start: 20231121, end: 20231121
  147. Compound Chlorhexidine Solution [Concomitant]
     Dates: start: 20230901, end: 20230901
  148. Compound Chlorhexidine Solution [Concomitant]
     Dates: start: 20231020, end: 20231020
  149. Compound Chlorhexidine Solution [Concomitant]
     Dates: start: 20231108, end: 20231108
  150. Compound Chlorhexidine Solution [Concomitant]
     Dates: start: 20231108, end: 20231108
  151. Compound Chlorhexidine Solution [Concomitant]
  152. Compound Chlorhexidine Solution [Concomitant]
     Dates: start: 20231116, end: 20231116
  153. Compound Chlorhexidine Solution [Concomitant]
     Dates: start: 20231123, end: 20231129
  154. Human granulocyte colony stimulating factor injection [Concomitant]
     Route: 058
     Dates: start: 20230831, end: 20230831
  155. Human granulocyte colony stimulating factor injection [Concomitant]
     Route: 058
     Dates: start: 20230903, end: 20230903
  156. Human granulocyte colony stimulating factor injection [Concomitant]
     Route: 058
     Dates: start: 20230904, end: 20230904
  157. Human granulocyte colony stimulating factor injection [Concomitant]
     Route: 058
     Dates: start: 20230904, end: 20230904
  158. Human granulocyte colony stimulating factor injection [Concomitant]
     Route: 058
     Dates: start: 20230905, end: 20230905
  159. Human granulocyte colony stimulating factor injection [Concomitant]
     Route: 058
     Dates: start: 20230907, end: 20230907
  160. Human granulocyte colony stimulating factor injection [Concomitant]
     Route: 058
     Dates: start: 20230909, end: 20230909
  161. Human granulocyte colony stimulating factor injection [Concomitant]
     Route: 058
     Dates: start: 20230912, end: 20230912
  162. Human granulocyte colony stimulating factor injection [Concomitant]
     Route: 058
     Dates: start: 20230918, end: 20230918
  163. Human granulocyte colony stimulating factor injection [Concomitant]
     Route: 058
     Dates: start: 20231002, end: 20231010
  164. Human granulocyte colony stimulating factor injection [Concomitant]
     Route: 058
  165. Human granulocyte colony stimulating factor injection [Concomitant]
     Route: 058
     Dates: start: 20231122, end: 20231122
  166. Human granulocyte colony stimulating factor injection [Concomitant]
     Route: 058
     Dates: start: 20231124, end: 20231124
  167. Human granulocyte colony stimulating factor injection [Concomitant]
     Route: 058
     Dates: start: 20231127, end: 20231127
  168. Human granulocyte colony stimulating factor injection [Concomitant]
     Route: 058
     Dates: start: 20231128, end: 20231130
  169. Human granulocyte colony stimulating factor injection [Concomitant]
     Route: 058
     Dates: start: 20231203, end: 20231204
  170. MAGNESIUM ISOGLYCYRRHIZINATE [Concomitant]
     Active Substance: MAGNESIUM ISOGLYCYRRHIZINATE
     Indication: Blood albumin decreased
     Dates: start: 20230812, end: 20230817
  171. MAGNESIUM ISOGLYCYRRHIZINATE [Concomitant]
     Active Substance: MAGNESIUM ISOGLYCYRRHIZINATE
     Route: 041
     Dates: start: 20231005, end: 20231005
  172. MAGNESIUM ISOGLYCYRRHIZINATE [Concomitant]
     Active Substance: MAGNESIUM ISOGLYCYRRHIZINATE
     Route: 041
     Dates: start: 20231006, end: 20231009
  173. MAGNESIUM ISOGLYCYRRHIZINATE [Concomitant]
     Active Substance: MAGNESIUM ISOGLYCYRRHIZINATE
     Route: 041
  174. MAGNESIUM ISOGLYCYRRHIZINATE [Concomitant]
     Active Substance: MAGNESIUM ISOGLYCYRRHIZINATE
     Route: 041
     Dates: start: 20231011, end: 20231013
  175. MAGNESIUM ISOGLYCYRRHIZINATE [Concomitant]
     Active Substance: MAGNESIUM ISOGLYCYRRHIZINATE
     Route: 041
     Dates: start: 20231014, end: 20231023
  176. MAGNESIUM ISOGLYCYRRHIZINATE [Concomitant]
     Active Substance: MAGNESIUM ISOGLYCYRRHIZINATE
     Route: 041
     Dates: start: 20231023
  177. METHYLPREDNISOLONE SODIUM SUCCINATE [Concomitant]
     Active Substance: METHYLPREDNISOLONE SODIUM SUCCINATE
     Route: 042
  178. METHYLPREDNISOLONE SODIUM SUCCINATE [Concomitant]
     Active Substance: METHYLPREDNISOLONE SODIUM SUCCINATE
     Route: 041
     Dates: start: 20231109, end: 20231112
  179. LACTATED RINGERS SOLUTION [Concomitant]
     Active Substance: CALCIUM CHLORIDE\POTASSIUM CHLORIDE\SODIUM CHLORIDE\SODIUM LACTATE
     Route: 041
     Dates: start: 20230913, end: 20230913
  180. LECITHIN [Concomitant]
     Active Substance: LECITHIN
     Dates: start: 20230813, end: 20230817
  181. LECITHIN [Concomitant]
     Active Substance: LECITHIN
     Dates: start: 20230902, end: 20230920
  182. LECITHIN [Concomitant]
     Active Substance: LECITHIN
  183. Pantoprazole Sodium Enteric-Coated Tablets [Concomitant]
     Route: 048
     Dates: start: 20230918, end: 20230918
  184. Pantoprazole Sodium Enteric-Coated Tablets [Concomitant]
     Dates: start: 20230920, end: 20230926
  185. ENOXAPARIN SODIUM [Concomitant]
     Active Substance: ENOXAPARIN SODIUM
     Route: 058
     Dates: start: 20230903, end: 20230903
  186. OCTREOTIDE ACETATE [Concomitant]
     Active Substance: OCTREOTIDE ACETATE
     Route: 058
     Dates: start: 20231010, end: 20231010
  187. OCTREOTIDE ACETATE [Concomitant]
     Active Substance: OCTREOTIDE ACETATE
     Route: 058
     Dates: start: 20231011, end: 20231011
  188. INSULIN HUMAN [Concomitant]
     Active Substance: INSULIN HUMAN
     Dates: start: 20230812, end: 20230817
  189. INSULIN HUMAN [Concomitant]
     Active Substance: INSULIN HUMAN
     Route: 041
     Dates: start: 20231009
  190. INSULIN HUMAN [Concomitant]
     Active Substance: INSULIN HUMAN
     Route: 041
     Dates: start: 20231012, end: 20231013
  191. FENTANYL TRANSDERMAL SYSTEM [Concomitant]
     Active Substance: FENTANYL
     Route: 062
     Dates: start: 20231008, end: 20231008
  192. Pethidine Hydrochloride Injection [Concomitant]
     Route: 030
     Dates: start: 20231010, end: 20231010
  193. TRANEXAMIC ACID [Concomitant]
     Active Substance: TRANEXAMIC ACID
  194. PREDNISONE ACETATE [Concomitant]
     Active Substance: PREDNISONE ACETATE
     Route: 048
     Dates: start: 20230920, end: 20230923
  195. IOVERSOL [Concomitant]
     Active Substance: IOVERSOL
     Dosage: 1 BOTTLE
     Dates: start: 20231009
  196. FLURBIPROFEN AXETIL [Concomitant]
     Active Substance: FLURBIPROFEN AXETIL
  197. Gabexate Mesilate for Injection [Concomitant]
  198. Gabexate Mesilate for Injection [Concomitant]
  199. COENZYME A FOR INJECTION [Concomitant]
     Dates: start: 20230812, end: 20230817
  200. COENZYME A FOR INJECTION [Concomitant]
  201. INDOMETHACIN [Concomitant]
     Active Substance: INDOMETHACIN
     Dates: start: 20231003, end: 20231003
  202. INDOMETHACIN [Concomitant]
     Active Substance: INDOMETHACIN
     Dates: start: 20231009, end: 20231009
  203. INDOMETHACIN [Concomitant]
     Active Substance: INDOMETHACIN
     Dosage: 0.5 HALF OF PELLET
     Dates: start: 20231013, end: 20231013
  204. VITAMIN B6 [Concomitant]
     Active Substance: PYRIDOXINE HYDROCHLORIDE
     Route: 041
     Dates: start: 20231014, end: 20231018
  205. VITAMIN B6 [Concomitant]
     Active Substance: PYRIDOXINE HYDROCHLORIDE
     Dates: start: 20231205, end: 20231207
  206. Granisetron transdermal patch [Concomitant]
  207. Granisetron transdermal patch [Concomitant]
     Route: 062
     Dates: start: 20231204, end: 20231204
  208. OMEPRAZOLE SODIUM [Concomitant]
     Active Substance: OMEPRAZOLE SODIUM
     Route: 042
     Dates: start: 20230918, end: 20230919
  209. OMEPRAZOLE SODIUM [Concomitant]
     Active Substance: OMEPRAZOLE SODIUM
     Dosage: 1 BOTTLE
     Route: 042
     Dates: start: 20231010, end: 20231010
  210. OMEPRAZOLE SODIUM [Concomitant]
     Active Substance: OMEPRAZOLE SODIUM
     Route: 042
     Dates: start: 20231011, end: 20231013
  211. OMEPRAZOLE SODIUM [Concomitant]
     Active Substance: OMEPRAZOLE SODIUM
     Route: 048
     Dates: start: 20231213, end: 20231214
  212. Live Combined Biffdobacterium,Lactobacillus And Enterococcus Capsules [Concomitant]
     Dates: start: 20230909, end: 20230926
  213. Xinhuang tablet [Concomitant]
     Route: 048
     Dates: start: 20230820, end: 20230820
  214. Xinhuang tablet [Concomitant]
     Route: 048
     Dates: start: 20230823, end: 20230823
  215. Xinhuang tablet [Concomitant]
     Route: 048
     Dates: start: 20231002, end: 20231003
  216. Xinhuang tablet [Concomitant]
     Route: 048
     Dates: start: 20231004, end: 20231004
  217. Xinhuang tablet [Concomitant]
     Route: 048
     Dates: start: 20231008, end: 20231008
  218. Xinhuang tablet [Concomitant]
     Route: 048
     Dates: start: 20231013, end: 20231013
  219. Promethazine needle [Concomitant]
     Route: 030
     Dates: start: 20230823, end: 20230823
  220. Recombinant thrombopoietin injection [Concomitant]
     Route: 058
     Dates: start: 20231003, end: 20231008
  221. Bifidobacterium Triple Active Bacteria Capsules [Concomitant]
     Route: 048
     Dates: start: 20230909, end: 20230909
  222. Bifidobacterium Triple Active Bacteria Capsules [Concomitant]
     Route: 048
     Dates: start: 20230913, end: 20230913
  223. Bifidobacterium Triple Active Bacteria Capsules [Concomitant]
     Route: 048
     Dates: start: 20231020, end: 20231020
  224. Imipenem cilastatin for injection [Concomitant]
     Route: 041
     Dates: start: 20230823, end: 20230828
  225. Fluconazole sodium chloride fixative [Concomitant]
     Route: 041
     Dates: start: 20231006, end: 20231009
  226. Fluconazole sodium chloride fixative [Concomitant]
     Route: 041
     Dates: start: 20231013, end: 20231013
  227. Montmorillonite powder [Concomitant]
     Dosage: 1 PUFF
     Route: 048
     Dates: start: 20230819, end: 20230819
  228. Heptapopalethanolamine tablets [Concomitant]
     Route: 048
     Dates: start: 20231002, end: 20231002
  229. Heptapopalethanolamine tablets [Concomitant]
     Route: 048
     Dates: start: 20231020, end: 20231020
  230. Heptapopalethanolamine tablets [Concomitant]
     Route: 048
     Dates: start: 20231203, end: 20231203
  231. Heptapopalethanolamine tablets [Concomitant]
     Route: 048
     Dates: start: 20231204, end: 20231204
  232. CALAMINE LOTION [Concomitant]
     Active Substance: CALAMINE LOTION
     Dates: start: 20230831, end: 20230831
  233. PANTOPRAZOLE [Concomitant]
     Active Substance: PANTOPRAZOLE
     Route: 048
     Dates: start: 20230920, end: 20230926
  234. VITAMIN K1 [Concomitant]
     Active Substance: PHYTONADIONE
  235. BUFFERIN COLD [Concomitant]
     Dosage: 1 DOSE, ONCE
     Route: 048

REACTIONS (15)
  - Hypokalaemia [Recovered/Resolved]
  - Alanine aminotransferase increased [Recovered/Resolved]
  - Renal impairment [Not Recovered/Not Resolved]
  - Hepatic function abnormal [Not Recovered/Not Resolved]
  - Left atrial enlargement [Not Recovered/Not Resolved]
  - Ascites [Not Recovered/Not Resolved]
  - Febrile infection [Not Recovered/Not Resolved]
  - Hypomagnesaemia [Recovered/Resolved]
  - Blood albumin decreased [Not Recovered/Not Resolved]
  - Neutrophil count decreased [Recovered/Resolved]
  - White blood cell count decreased [Not Recovered/Not Resolved]
  - Pancytopenia [Not Recovered/Not Resolved]
  - Aspartate aminotransferase increased [Recovered/Resolved]
  - Anaemia [Recovered/Resolved]
  - Hypoalbuminaemia [Recovered/Resolved]

NARRATIVE: CASE EVENT DATE: 20230819
